FAERS Safety Report 25592414 (Version 2)
Quarter: 2025Q3

REPORT INFORMATION
  Report Type: Spontaneous
  Country: EU (occurrence: EU)
  Receive Date: 20250722
  Receipt Date: 20250729
  Transmission Date: 20251021
  Serious: Yes (Life-Threatening, Hospitalization, Other)
  Sender: MYLAN
  Company Number: None

PATIENT
  Age: 54 Year
  Sex: Female
  Weight: 95 kg

DRUGS (8)
  1. SUMATRIPTAN [Suspect]
     Active Substance: SUMATRIPTAN
     Indication: Migraine
     Dates: start: 20250625, end: 20250626
  2. SUMATRIPTAN [Suspect]
     Active Substance: SUMATRIPTAN
     Route: 048
     Dates: start: 20250625, end: 20250626
  3. SUMATRIPTAN [Suspect]
     Active Substance: SUMATRIPTAN
     Route: 048
     Dates: start: 20250625, end: 20250626
  4. SUMATRIPTAN [Suspect]
     Active Substance: SUMATRIPTAN
     Dates: start: 20250625, end: 20250626
  5. INDOMETHACIN [Concomitant]
     Active Substance: INDOMETHACIN
     Indication: Headache
  6. INDOMETHACIN [Concomitant]
     Active Substance: INDOMETHACIN
     Route: 054
  7. INDOMETHACIN [Concomitant]
     Active Substance: INDOMETHACIN
     Route: 054
  8. INDOMETHACIN [Concomitant]
     Active Substance: INDOMETHACIN

REACTIONS (5)
  - Loss of consciousness [Recovered/Resolved]
  - Retching [Recovered/Resolved]
  - Abdominal pain [Recovered/Resolved]
  - Rash [Recovered/Resolved]
  - Hypotension [Recovered/Resolved]

NARRATIVE: CASE EVENT DATE: 20250626
